FAERS Safety Report 20451114 (Version 2)
Quarter: 2022Q1

REPORT INFORMATION
  Report Type: Spontaneous
  Country: AU (occurrence: AU)
  Receive Date: 20220209
  Receipt Date: 20220215
  Transmission Date: 20220423
  Serious: Yes (Other)
  Sender: FDA-Public Use
  Company Number: AU-ALLERGAN-2201272US

PATIENT
  Sex: Male

DRUGS (3)
  1. UNSPECIFIED INGREDIENT [Suspect]
     Active Substance: UNSPECIFIED INGREDIENT
     Indication: Product used for unknown indication
     Dosage: UNK
  2. ELIGARD [Suspect]
     Active Substance: LEUPROLIDE ACETATE
     Indication: Prostate cancer
     Dosage: 22.5 MG, Q3MONTHS
     Route: 058
     Dates: start: 20200120
  3. DEVICE [Suspect]
     Active Substance: DEVICE
     Indication: Product used for unknown indication
     Dosage: UNK

REACTIONS (12)
  - Haemorrhagic diathesis [Unknown]
  - Hip surgery [Unknown]
  - Asthenia [Unknown]
  - Back injury [Unknown]
  - Contusion [Unknown]
  - Coordination abnormal [Unknown]
  - Fatigue [Unknown]
  - Hot flush [Unknown]
  - Increased tendency to bruise [Unknown]
  - Lethargy [Not Recovered/Not Resolved]
  - Nausea [Unknown]
  - Skin laceration [Unknown]

NARRATIVE: CASE EVENT DATE: 20201201
